FAERS Safety Report 6291497-3 (Version None)
Quarter: 2009Q3

REPORT INFORMATION
  Report Type: 
  Country: None (occurrence: None)
  Receive Date: 20090730
  Receipt Date: 20090716
  Transmission Date: 20100115
  Serious: Yes (Hospitalization, Other)
  Sender: FDA-Public Use
  Company Number: DK-PFIZER INC-2009202443

PATIENT
  Age: 72 Year

DRUGS (22)
  1. DOXAZOSIN MESILATE [Suspect]
     Dosage: UNK
  2. LISINOPRIL [Suspect]
     Dosage: 20 MG, UNK
     Dates: start: 20090110
  3. LISINOPRIL [Suspect]
     Dosage: UNK
     Dates: start: 20080619
  4. SAXAGLIPTIN [Suspect]
     Indication: TYPE 2 DIABETES MELLITUS
     Dosage: 2.5 MG, UNK
     Route: 048
     Dates: start: 20070730
  5. FOSINORM [Suspect]
     Dosage: UNK
  6. PLACEBO [Suspect]
     Indication: TYPE 2 DIABETES MELLITUS
     Dosage: UNK
     Route: 048
  7. NEBILET [Suspect]
     Dosage: UNK
  8. TOREM [Suspect]
     Dosage: UNK
  9. CARMEN [Suspect]
     Dosage: UNK
  10. ASPIRIN [Concomitant]
     Dosage: 100
     Dates: start: 20080619
  11. LISINOPRIL [Concomitant]
     Dosage: UNK
     Dates: start: 20080619
  12. AMLODIPINE [Concomitant]
     Dosage: UNK
     Dates: start: 20080619
  13. ALLOPURINOL [Concomitant]
     Dosage: UNK
     Dates: start: 20081218, end: 20081230
  14. AMOXICILLIN W/CLAVULANATE POTASSIUM [Concomitant]
     Dosage: UNK
     Dates: start: 20081119, end: 20081128
  15. XIPAMIDE [Concomitant]
     Dosage: UNK
     Dates: start: 20080619, end: 20090109
  16. INSUMAN COMB 25 [Concomitant]
     Dosage: UNK
     Dates: start: 20080827, end: 20090103
  17. CEFUROXIME [Concomitant]
     Dosage: UNK
     Dates: start: 20090224
  18. BISOPROLOL [Concomitant]
     Dosage: UNK
     Dates: start: 20090110
  19. TORASEMIDE [Concomitant]
     Dosage: UNK
     Dates: start: 20080723
  20. METOPROLOL [Concomitant]
     Dosage: UNK
     Dates: start: 20080619, end: 20090109
  21. TRAMADOL [Concomitant]
     Dosage: UNK
     Dates: start: 20081216, end: 20081218
  22. DIPYRONE [Concomitant]
     Dosage: UNK
     Dates: start: 20081218, end: 20081219

REACTIONS (5)
  - ABDOMINAL PAIN UPPER [None]
  - DIZZINESS [None]
  - LOSS OF CONSCIOUSNESS [None]
  - ORTHOSTATIC HYPOTENSION [None]
  - PNEUMONIA [None]
